FAERS Safety Report 10874586 (Version 2)
Quarter: 2015Q2

REPORT INFORMATION
  Report Type: Spontaneous
  Country: US (occurrence: US)
  Receive Date: 20150227
  Receipt Date: 20150402
  Transmission Date: 20150821
  Serious: Yes (Death, Hospitalization, Other)
  Sender: FDA-Public Use
  Company Number: US-MERCK-1502USA011138

PATIENT
  Age: 66 Year
  Sex: Male
  Weight: 90.7 kg

DRUGS (4)
  1. LIPITOR [Concomitant]
     Active Substance: ATORVASTATIN CALCIUM
     Dosage: 20 MG, QD
     Route: 048
     Dates: start: 2003, end: 201309
  2. ALLOPURINOL. [Concomitant]
     Active Substance: ALLOPURINOL
     Indication: GOUT
     Dosage: 300 MG, QD
     Route: 048
     Dates: start: 2003, end: 201309
  3. JANUVIA [Suspect]
     Active Substance: SITAGLIPTIN PHOSPHATE
     Indication: TYPE 2 DIABETES MELLITUS
     Dosage: 100 MG, QD
     Route: 048
     Dates: start: 20071210, end: 20130215
  4. LISINOPRIL. [Concomitant]
     Active Substance: LISINOPRIL
     Dosage: 20 MG, QD
     Route: 048
     Dates: start: 2003, end: 201309

REACTIONS (34)
  - Bile duct stent insertion [Unknown]
  - Increased tendency to bruise [Unknown]
  - Arteriosclerosis coronary artery [Unknown]
  - Aortic arteriosclerosis [Unknown]
  - Prostatomegaly [Unknown]
  - Essential hypertension [Unknown]
  - Pyrexia [Recovered/Resolved]
  - Pancreatic carcinoma metastatic [Unknown]
  - Sepsis syndrome [Unknown]
  - Procedural complication [Unknown]
  - Renal atrophy [Unknown]
  - Pneumobilia [Unknown]
  - Spinal osteoarthritis [Unknown]
  - Metastases to lung [Unknown]
  - Pneumothorax [Unknown]
  - Pulmonary haemorrhage [Unknown]
  - Insulin-requiring type 2 diabetes mellitus [Unknown]
  - White blood cell count decreased [Unknown]
  - Bacteraemia [Recovered/Resolved]
  - Periportal oedema [Unknown]
  - Cholelithiasis [Unknown]
  - Renal cyst [Unknown]
  - Erectile dysfunction [Unknown]
  - Catheter placement [Unknown]
  - Pancreatic stent placement [Unknown]
  - Prostate cancer [Unknown]
  - Cataract operation [Unknown]
  - Hyperlipidaemia [Unknown]
  - Stasis dermatitis [Unknown]
  - Death [Fatal]
  - Metastases to adrenals [Unknown]
  - Micturition disorder [Unknown]
  - Oedema peripheral [Unknown]
  - Constipation [Unknown]

NARRATIVE: CASE EVENT DATE: 201301
